FAERS Safety Report 8917754 (Version 1)
Quarter: 2012Q4

REPORT INFORMATION
  Report Type: 
  Country: US (occurrence: US)
  Receive Date: 20121120
  Receipt Date: 20121120
  Transmission Date: 20130627
  Serious: Yes (Other)
  Sender: FDA-Public Use
  Company Number: US-MYLANLABS-2012S1023492

PATIENT
  Age: 42 Year
  Sex: Female

DRUGS (4)
  1. QUETIAPINE [Suspect]
     Indication: DEPRESSION
     Route: 065
  2. CITALOPRAM [Suspect]
     Indication: DEPRESSION
     Route: 065
  3. AMPHETAMINE SALTS [Suspect]
     Indication: DEPRESSION
     Route: 065
  4. ONDANSETRON [Suspect]
     Dosage: Single dose administered intraoperatively
     Route: 065

REACTIONS (1)
  - Serotonin syndrome [Recovered/Resolved]
